FAERS Safety Report 16755319 (Version 1)
Quarter: 2019Q4

REPORT INFORMATION
  Report Type: Spontaneous
  Country: US (occurrence: US)
  Receive Date: 20190828
  Receipt Date: 20190828
  Transmission Date: 20200122
  Serious: Yes (Death)
  Sender: FDA-Public Use
  Company Number: None

PATIENT
  Age: 76 Year
  Sex: Male
  Weight: 121.5 kg

DRUGS (22)
  1. GLUCOSAMINE [Concomitant]
     Active Substance: GLUCOSAMINE
  2. METOPROLOL. [Concomitant]
     Active Substance: METOPROLOL
  3. LORAZEPAM. [Concomitant]
     Active Substance: LORAZEPAM
  4. APAP [Concomitant]
     Active Substance: ACETAMINOPHEN
  5. FUROSEMIDE. [Concomitant]
     Active Substance: FUROSEMIDE
  6. MVI [Concomitant]
     Active Substance: VITAMINS
  7. NINLARO [Suspect]
     Active Substance: IXAZOMIB CITRATE
     Indication: PLASMA CELL MYELOMA
     Dosage: ?          OTHER FREQUENCY:WEEKLY DAY 1,8,15;?
     Route: 048
     Dates: start: 20190524
  8. CELEBREX [Concomitant]
     Active Substance: CELECOXIB
  9. DEXAMETHASONE. [Concomitant]
     Active Substance: DEXAMETHASONE
  10. DILTIAZEM. [Concomitant]
     Active Substance: DILTIAZEM
  11. FLONASE [Concomitant]
     Active Substance: FLUTICASONE PROPIONATE
  12. ACYCLOVIR. [Concomitant]
     Active Substance: ACYCLOVIR
  13. CARVEDILOL. [Concomitant]
     Active Substance: CARVEDILOL
  14. CYANOCOBALAMIN. [Concomitant]
     Active Substance: CYANOCOBALAMIN
  15. ELIQUIS [Concomitant]
     Active Substance: APIXABAN
  16. NORCO [Concomitant]
     Active Substance: ACETAMINOPHEN\HYDROCODONE BITARTRATE
  17. AMIODARONE [Concomitant]
     Active Substance: AMIODARONE
  18. IMODIUM AD [Concomitant]
     Active Substance: LOPERAMIDE HYDROCHLORIDE
  19. DARZALEX [Concomitant]
     Active Substance: DARATUMUMAB
  20. DIPHENHYDRAMINE. [Concomitant]
     Active Substance: DIPHENHYDRAMINE
  21. DIPHENOXYLATE/ATROPINE [Concomitant]
     Active Substance: ATROPINE\DIPHENOXYLATE
  22. FAMOTIDINE. [Concomitant]
     Active Substance: FAMOTIDINE

REACTIONS (1)
  - Death [None]

NARRATIVE: CASE EVENT DATE: 20190823
